FAERS Safety Report 12957201 (Version 1)
Quarter: 2016Q4

REPORT INFORMATION
  Report Type: Spontaneous
  Country: US (occurrence: US)
  Receive Date: 20161118
  Receipt Date: 20161118
  Transmission Date: 20170207
  Serious: Yes (Other)
  Sender: FDA-Public Use
  Company Number: US-VERTEX PHARMACEUTICALS-2016-005520

PATIENT
  Age: 48 Year
  Sex: Female

DRUGS (3)
  1. FLUOXETINE [Concomitant]
     Active Substance: FLUOXETINE HYDROCHLORIDE
  2. ORKAMBI [Suspect]
     Active Substance: IVACAFTOR\LUMACAFTOR
     Indication: CYSTIC FIBROSIS
     Dosage: UNK
     Route: 048
     Dates: start: 20160203, end: 20160206
  3. WELLBUTRIN [Concomitant]
     Active Substance: BUPROPION HYDROCHLORIDE

REACTIONS (11)
  - Anxiety [Recovered/Resolved]
  - Rash [Unknown]
  - Suicidal ideation [Recovered/Resolved]
  - Peak expiratory flow rate decreased [Unknown]
  - Drug intolerance [Unknown]
  - Treatment noncompliance [Unknown]
  - Infective pulmonary exacerbation of cystic fibrosis [Unknown]
  - Dyspnoea [Recovering/Resolving]
  - Respiration abnormal [Recovering/Resolving]
  - Increased bronchial secretion [Unknown]
  - Swelling face [Unknown]

NARRATIVE: CASE EVENT DATE: 201602
